FAERS Safety Report 5277986-9 (Version None)
Quarter: 2007Q1

REPORT INFORMATION
  Report Type: 
  Country: None (occurrence: None)
  Receive Date: 20070321
  Receipt Date: 20070313
  Transmission Date: 20070707
  Serious: Yes (Other)
  Sender: FDA-Public Use
  Company Number: THQ2007A00199

PATIENT
  Sex: Female

DRUGS (1)
  1. ZOTON SUSPENSION (LANSOPRAZOLE) (SUSPENSION) [Suspect]
     Dosage: UNK PER ORAL
     Route: 048

REACTIONS (3)
  - CONDITION AGGRAVATED [None]
  - FUNGAL INFECTION [None]
  - LUNG INFECTION [None]
